FAERS Safety Report 9408958 (Version 1)
Quarter: 2013Q3

REPORT INFORMATION
  Report Type: Spontaneous
  Country: US (occurrence: None)
  Receive Date: 20130717
  Receipt Date: 20130717
  Transmission Date: 20140515
  Serious: Yes (Other)
  Sender: FDA-Public Use
  Company Number: None

PATIENT
  Age: 65 Year
  Sex: Male

DRUGS (2)
  1. ZYREXIN [Suspect]
     Indication: DRUG THERAPY ENHANCEMENT
     Dosage: 2 CAPSULES  ONCE  PO
     Route: 048
     Dates: start: 20130406, end: 20130406
  2. LISINOPRIL [Concomitant]

REACTIONS (3)
  - Chills [None]
  - Tremor [None]
  - Blood pressure increased [None]
